FAERS Safety Report 4398727-3 (Version None)
Quarter: 2004Q3

REPORT INFORMATION
  Report Type: 
  Country: None (occurrence: None)
  Receive Date: 20040712
  Receipt Date: 20040618
  Transmission Date: 20050211
  Serious: Yes (Hospitalization)
  Sender: FDA-Public Use
  Company Number: JP_040603491

PATIENT
  Age: 62 Year
  Sex: Male
  Weight: 63 kg

DRUGS (5)
  1. GEMZAR [Suspect]
     Indication: PANCREATIC CARCINOMA
     Dosage: 10 MG/M2 OTHER
     Route: 050
     Dates: start: 20020723, end: 20021126
  2. RADIATION THERAPY [Concomitant]
  3. BASEN (VOGLIBOSE) [Concomitant]
  4. AMARYL [Concomitant]
  5. MS CONTIN [Concomitant]

REACTIONS (6)
  - GASTROINTESTINAL HAEMORRHAGE [None]
  - HAEMOGLOBIN DECREASED [None]
  - MALIGNANT NEOPLASM PROGRESSION [None]
  - METASTASES TO LIVER [None]
  - PANCREATIC CARCINOMA [None]
  - PLATELET COUNT DECREASED [None]
